FAERS Safety Report 14935193 (Version 1)
Quarter: 2018Q2

REPORT INFORMATION
  Report Type: Report from Study
  Country: TW (occurrence: TW)
  Receive Date: 20180524
  Receipt Date: 20180524
  Transmission Date: 20180711
  Serious: Yes (Other)
  Sender: FDA-Public Use
  Company Number: TW-PFIZER INC-2015327473

PATIENT
  Age: 30 Year
  Sex: Female

DRUGS (1)
  1. KETAMINE HCL [Suspect]
     Active Substance: KETAMINE HYDROCHLORIDE
     Dosage: 2.5 G, DAILY
     Route: 045

REACTIONS (4)
  - Drug abuse [Unknown]
  - Lower urinary tract symptoms [Unknown]
  - Ureteral polyp [Unknown]
  - Hydronephrosis [Recovering/Resolving]
